FAERS Safety Report 21919703 (Version 1)
Quarter: 2023Q1

REPORT INFORMATION
  Report Type: Spontaneous
  Country: US (occurrence: US)
  Receive Date: 20230127
  Receipt Date: 20230127
  Transmission Date: 20230418
  Serious: Yes (Other)
  Sender: FDA-Public Use
  Company Number: US-BRISTOL-MYERS SQUIBB COMPANY-2023-012836

PATIENT
  Age: 58 Year
  Sex: Female
  Weight: 95.7 kg

DRUGS (4)
  1. REVLIMID [Suspect]
     Active Substance: LENALIDOMIDE
     Indication: Plasma cell myeloma
     Dosage: FREQUENCY OF 21 DAYS 7 DAYS OFF VIA ORAL ROUTE
     Route: 048
     Dates: start: 20180219, end: 20180722
  2. EMPLICITI [Suspect]
     Active Substance: ELOTUZUMAB
     Indication: Plasma cell myeloma
     Dosage: DOSE OF 10 MG /KG WEEKLY VIA IV ROUTE, AND STOPPED DUE TO SCHEDULE CHANGE.
     Route: 042
     Dates: start: 20180205, end: 20180405
  3. EMPLICITI [Suspect]
     Active Substance: ELOTUZUMAB
     Dosage: AT A DOSE OF 10MG/KG VIA IV ROUTE EVERY 2 WEEKS AND STOPPED DUE TO RELAPSE/PROGRESSIVE DISEASE.
     Route: 042
     Dates: start: 20180406, end: 20180706
  4. DEXAMETHASONE [Suspect]
     Active Substance: DEXAMETHASONE
     Indication: Plasma cell myeloma
     Dosage: AT A DOSE OF 40 MG ON DAYS PRE-MEDICATE ELO PO/IV ROUTE STANDARD PO OTHER WISE AND STOPPED DUE TO DU
     Route: 048
     Dates: start: 20180205, end: 20180722

REACTIONS (1)
  - Plasma cell myeloma [Unknown]
